FAERS Safety Report 17721294 (Version 1)
Quarter: 2020Q2

REPORT INFORMATION
  Report Type: Report from Study
  Country: NL (occurrence: NL)
  Receive Date: 20200429
  Receipt Date: 20200429
  Transmission Date: 20200714
  Serious: Yes (Hospitalization)
  Sender: FDA-Public Use
  Company Number: NL-ROCHE-2589512

PATIENT
  Age: 70 Year

DRUGS (8)
  1. TRASTUZUMAB. [Suspect]
     Active Substance: TRASTUZUMAB
     Dosage: D1, Q3W
     Route: 041
     Dates: start: 20191203
  2. CARBOPLATIN. [Suspect]
     Active Substance: CARBOPLATIN
     Dosage: D1, (D8), Q3W
     Route: 042
     Dates: start: 20191203
  3. LOPERAMIDE [Concomitant]
     Active Substance: LOPERAMIDE
     Route: 065
     Dates: start: 20200414
  4. PERTUZUMAB. [Suspect]
     Active Substance: PERTUZUMAB
     Dosage: D1, Q3W,
     Route: 042
     Dates: start: 20191203
  5. KCL [Concomitant]
     Active Substance: POTASSIUM CHLORIDE
     Route: 065
     Dates: start: 20200414, end: 20200417
  6. PACLITAXEL. [Suspect]
     Active Substance: PACLITAXEL
     Dosage: D1, D8, Q3W
     Route: 042
     Dates: start: 20191203
  7. MAGNESIUM GLUCONATE [Concomitant]
     Active Substance: MAGNESIUM GLUCONATE
     Dosage: 0.1 MMOL/ML
     Route: 065
     Dates: start: 20200414
  8. NADROPARINE [Concomitant]
     Active Substance: NADROPARIN
     Dosage: 2850IE
     Route: 065
     Dates: start: 20200414, end: 20200417

REACTIONS (1)
  - Malaise [Recovered/Resolved with Sequelae]

NARRATIVE: CASE EVENT DATE: 20200414
